FAERS Safety Report 9717290 (Version 4)
Quarter: 2014Q1

REPORT INFORMATION
  Report Type: Report from Study
  Country: BR (occurrence: BR)
  Receive Date: 20131127
  Receipt Date: 20140130
  Transmission Date: 20141002
  Serious: Yes (Death, Hospitalization)
  Sender: FDA-Public Use
  Company Number: BR-ROCHE-1307690

PATIENT
  Age: 63 Year
  Sex: Female
  Weight: 75 kg

DRUGS (8)
  1. PERTUZUMAB [Suspect]
     Indication: HER-2 POSITIVE BREAST CANCER
     Route: 042
     Dates: start: 20130516
  2. PERTUZUMAB [Suspect]
     Dosage: MAINTENANCE DOSE AS PER PROTOCOL. LAST DOSE PRIOR TO SAE:12/NOV/2013, DRUG INTERRUPTED ON 19/NOV/201
     Route: 042
     Dates: end: 20131128
  3. TRASTUZUMAB [Suspect]
     Indication: HER-2 POSITIVE BREAST CANCER
     Route: 042
     Dates: start: 20130516
  4. TRASTUZUMAB [Suspect]
     Dosage: MAINTENANCE DOSE AS PER PROTOCOL. LAST DOSE PRIOR TO SAE:13/NOV/2013, DRUG INTERRUPTED ON 19/NOV/201
     Route: 042
     Dates: end: 20131128
  5. VINORELBINE [Suspect]
     Indication: BREAST CANCER
     Dosage: LAST DOSE PRIOR TO EVENT ON: 13/NOV/2013, DRUG INTERRUPTED ON 19/NOV/2013
     Route: 042
     Dates: start: 20130516, end: 20131128
  6. VINORELBINE [Suspect]
     Indication: HER-2 POSITIVE BREAST CANCER
  7. WARFARIN [Concomitant]
     Route: 065
     Dates: start: 20130911, end: 20131120
  8. OMEPRAZOLE [Concomitant]
     Route: 065
     Dates: start: 20130927, end: 20131128

REACTIONS (2)
  - Hyponatraemia [Fatal]
  - Neutropenia [Recovered/Resolved]
